FAERS Safety Report 26099449 (Version 2)
Quarter: 2025Q4

REPORT INFORMATION
  Report Type: Other
  Country: US (occurrence: US)
  Receive Date: 20251128
  Receipt Date: 20251222
  Transmission Date: 20260118
  Serious: No
  Sender: AGIOS PHARMACEUTICALS
  Company Number: US-AGIOS-2511US04566

PATIENT
  Age: 34 Year
  Sex: Female

DRUGS (1)
  1. PYRUKYND [Suspect]
     Active Substance: MITAPIVAT
     Indication: Product used for unknown indication
     Dosage: Q12H
     Route: 048
     Dates: start: 20230213

REACTIONS (1)
  - Polymenorrhoea [Unknown]
